FAERS Safety Report 20127710 (Version 1)
Quarter: 2021Q4

REPORT INFORMATION
  Report Type: Spontaneous
  Country: US (occurrence: None)
  Receive Date: 20211129
  Receipt Date: 20211129
  Transmission Date: 20220303
  Serious: Yes (Other)
  Sender: FDA-Public Use
  Company Number: None

PATIENT
  Age: 42 Year
  Sex: Female
  Weight: 99.79 kg

DRUGS (1)
  1. PARAGARD T 380A [Suspect]
     Active Substance: COPPER
     Dates: start: 20211115, end: 20211124

REACTIONS (3)
  - Urinary tract infection [None]
  - Device dislocation [None]
  - Staphylococcal infection [None]

NARRATIVE: CASE EVENT DATE: 20211115
